FAERS Safety Report 16918202 (Version 2)
Quarter: 2020Q2

REPORT INFORMATION
  Report Type: Spontaneous
  Country: US (occurrence: US)
  Receive Date: 20191015
  Receipt Date: 20200430
  Transmission Date: 20200713
  Serious: No
  Sender: FDA-Public Use
  Company Number: US-JNJFOC-20191017973

PATIENT
  Sex: Male

DRUGS (1)
  1. RISPERDAL [Suspect]
     Active Substance: RISPERIDONE
     Indication: BREAST CANCER
     Route: 065

REACTIONS (3)
  - Product use in unapproved indication [Unknown]
  - Blood prolactin increased [Unknown]
  - Off label use [Unknown]
